FAERS Safety Report 11492876 (Version 1)
Quarter: 2015Q3

REPORT INFORMATION
  Report Type: Report from Study
  Country: CA (occurrence: CA)
  Receive Date: 20150911
  Receipt Date: 20150911
  Transmission Date: 20151125
  Serious: Yes (Other)
  Sender: FDA-Public Use
  Company Number: CA-ROCHE-1484060

PATIENT
  Sex: Female

DRUGS (9)
  1. RITUXAN [Suspect]
     Active Substance: RITUXIMAB
     Indication: PEMPHIGUS
     Dosage: DAY 1 AND DAY 15
     Route: 042
     Dates: start: 20131107
  2. ACETAMINOPHEN. [Concomitant]
     Active Substance: ACETAMINOPHEN
     Dosage: 975MG CHANGED TO 1000MG
     Route: 048
     Dates: start: 20131107
  3. METHYLPREDNISOLONE. [Concomitant]
     Active Substance: METHYLPREDNISOLONE
     Route: 042
     Dates: start: 20131107
  4. ADVIL [Concomitant]
     Active Substance: IBUPROFEN
  5. DIPHENHYDRAMINE HCL [Concomitant]
     Active Substance: DIPHENHYDRAMINE HYDROCHLORIDE
     Route: 048
     Dates: start: 20131107
  6. VITAMIN B12 [Concomitant]
     Active Substance: CYANOCOBALAMIN
  7. PREDNISONE. [Concomitant]
     Active Substance: PREDNISONE
  8. FOSAMAX [Concomitant]
     Active Substance: ALENDRONATE SODIUM
  9. TYLENOL [Concomitant]
     Active Substance: ACETAMINOPHEN

REACTIONS (3)
  - Uterine leiomyoma [Not Recovered/Not Resolved]
  - Oral mucosal exfoliation [Not Recovered/Not Resolved]
  - Pemphigus [Not Recovered/Not Resolved]

NARRATIVE: CASE EVENT DATE: 2014
